FAERS Safety Report 21289594 (Version 1)
Quarter: 2022Q3

REPORT INFORMATION
  Report Type: Spontaneous
  Country: FR (occurrence: FR)
  Receive Date: 20220902
  Receipt Date: 20220902
  Transmission Date: 20221027
  Serious: Yes (Other)
  Sender: FDA-Public Use
  Company Number: FR-MYLANLABS-2022M1091007

PATIENT
  Age: 40 Year
  Sex: Female

DRUGS (1)
  1. CYSTAGON [Suspect]
     Active Substance: CYSTEAMINE BITARTRATE
     Indication: Cystinosis
     Dosage: 750 MILLIGRAM, BID (1500 MG PER A DAY)
     Route: 048
     Dates: start: 20220304

REACTIONS (4)
  - Near death experience [Unknown]
  - Mental disorder [Unknown]
  - Morbid thoughts [Unknown]
  - Diarrhoea [Unknown]

NARRATIVE: CASE EVENT DATE: 20220627
